FAERS Safety Report 21858322 (Version 1)
Quarter: 2023Q1

REPORT INFORMATION
  Report Type: Spontaneous
  Country: ZA (occurrence: ZA)
  Receive Date: 20230113
  Receipt Date: 20230113
  Transmission Date: 20230418
  Serious: Yes (Other)
  Sender: FDA-Public Use
  Company Number: ZA-ABBVIE-4268569

PATIENT
  Age: 67 Year
  Sex: Female

DRUGS (1)
  1. HUMIRA [Suspect]
     Active Substance: ADALIMUMAB
     Indication: Product used for unknown indication
     Route: 058
     Dates: start: 202111, end: 202206

REACTIONS (4)
  - Congestive cardiomyopathy [Unknown]
  - Cardiac failure [Unknown]
  - Systemic toxicity [Unknown]
  - Investigation abnormal [Unknown]

NARRATIVE: CASE EVENT DATE: 20220601
